FAERS Safety Report 20358147 (Version 5)
Quarter: 2023Q4

REPORT INFORMATION
  Report Type: Report from Study
  Country: US (occurrence: US)
  Receive Date: 20220120
  Receipt Date: 20231003
  Transmission Date: 20240110
  Serious: Yes (Hospitalization, Other)
  Sender: FDA-Public Use
  Company Number: US-UCBSA-2022001664

PATIENT
  Sex: Female

DRUGS (8)
  1. LACOSAMIDE [Suspect]
     Active Substance: LACOSAMIDE
     Indication: Seizure
     Dosage: 100 MILLIGRAM, 5X/DAY
  2. LACOSAMIDE [Suspect]
     Active Substance: LACOSAMIDE
     Indication: Epilepsy
     Dosage: 100 MILLIGRAM, 4X/DAY (QID)
  3. LACOSAMIDE [Suspect]
     Active Substance: LACOSAMIDE
     Dosage: 100 MILLIGRAM, 2X/DAY (BID)
  4. NAYZILAM [Suspect]
     Active Substance: MIDAZOLAM
     Indication: Product used for unknown indication
     Dosage: UNK, AS NEEDED (PRN)
  5. CIPRO [Suspect]
     Active Substance: CIPROFLOXACIN HYDROCHLORIDE
     Indication: Urinary tract infection
     Dosage: UNK
     Dates: start: 202201
  6. PHENOBARBITAL [Interacting]
     Active Substance: PHENOBARBITAL
     Indication: Product used for unknown indication
     Dosage: UNK
  7. JANSSEN COVID-19 VACCINE [Interacting]
     Active Substance: AD26.COV2.S
     Indication: Product used for unknown indication
     Dosage: UNK
  8. AZO [Concomitant]
     Active Substance: PHENAZOPYRIDINE HYDROCHLORIDE
     Indication: Urinary tract infection

REACTIONS (13)
  - Kidney infection [Not Recovered/Not Resolved]
  - Hemiparesis [Not Recovered/Not Resolved]
  - Bladder cancer [Not Recovered/Not Resolved]
  - Bladder operation [Not Recovered/Not Resolved]
  - Urinary tract infection [Unknown]
  - Hypersensitivity [Unknown]
  - Muscle twitching [Not Recovered/Not Resolved]
  - Vaccination complication [Unknown]
  - Drug interaction [Unknown]
  - Wheelchair user [Recovering/Resolving]
  - COVID-19 immunisation [Unknown]
  - Product use issue [Unknown]
  - Overdose [Unknown]

NARRATIVE: CASE EVENT DATE: 20220101
